FAERS Safety Report 22103989 (Version 1)
Quarter: 2023Q1

REPORT INFORMATION
  Report Type: Report from Study
  Country: US (occurrence: US)
  Receive Date: 20230316
  Receipt Date: 20230316
  Transmission Date: 20230418
  Serious: Yes (Hospitalization, Other)
  Sender: FDA-Public Use
  Company Number: US-GILEAD-2023-0620189

PATIENT
  Age: 76 Year
  Sex: Male
  Weight: 86.2 kg

DRUGS (9)
  1. AMBRISENTAN [Suspect]
     Active Substance: AMBRISENTAN
     Indication: Product used for unknown indication
     Dosage: UNK
     Route: 065
  2. ORENITRAM [Suspect]
     Active Substance: TREPROSTINIL
     Indication: Pulmonary arterial hypertension
     Dosage: UNK UNK, TID
     Route: 048
     Dates: start: 20220826, end: 202212
  3. ORENITRAM [Suspect]
     Active Substance: TREPROSTINIL
     Dosage: UNK UNK, TID
     Route: 048
  4. ORENITRAM [Suspect]
     Active Substance: TREPROSTINIL
     Dosage: UNK UNK, TID
     Route: 048
  5. ORENITRAM [Suspect]
     Active Substance: TREPROSTINIL
     Dosage: 2.5 MG, TID
     Route: 048
     Dates: start: 2022
  6. ORENITRAM [Suspect]
     Active Substance: TREPROSTINIL
     Dosage: 3.5 MG, TID
     Route: 048
     Dates: start: 2022
  7. ORENITRAM [Suspect]
     Active Substance: TREPROSTINIL
     Dosage: 0.25 MG, TID
     Route: 048
     Dates: start: 2022
  8. ORENITRAM [Suspect]
     Active Substance: TREPROSTINIL
     Dosage: UNK UNK, TID
     Route: 048
     Dates: start: 20220826, end: 202212
  9. AMLODIPINE [Concomitant]
     Active Substance: AMLODIPINE BESYLATE

REACTIONS (11)
  - Fatigue [Unknown]
  - Pneumonia [Recovering/Resolving]
  - Dyspnoea [Recovering/Resolving]
  - Malaise [Recovering/Resolving]
  - Gait inability [Recovering/Resolving]
  - Nausea [Recovering/Resolving]
  - Insomnia [Recovering/Resolving]
  - Depression [Recovering/Resolving]
  - Oedema [Unknown]
  - Therapy partial responder [Recovering/Resolving]
  - Therapy non-responder [Recovering/Resolving]

NARRATIVE: CASE EVENT DATE: 20220101
